FAERS Safety Report 7939976-4 (Version None)
Quarter: 2011Q4

REPORT INFORMATION
  Report Type: 
  Country: None (occurrence: None)
  Receive Date: 20111125
  Receipt Date: 20111118
  Transmission Date: 20120403
  Serious: Yes (Hospitalization)
  Sender: FDA-Public Use
  Company Number: PHEH2011US010083

PATIENT
  Sex: Female

DRUGS (7)
  1. INTEGRAL [Concomitant]
     Dosage: 100 MG, BID
  2. MOLINDONE HCL [Concomitant]
     Dosage: 10 MG, BID
  3. BACLOFEN [Concomitant]
     Dosage: 10 UKN, BID
  4. METHYLPREDNISOLONE [Concomitant]
     Dosage: UNK UKN, UNK
  5. LYRICA [Concomitant]
     Dosage: 100 MG, QD FOR FIVE DAYS
  6. GILENYA [Suspect]
     Indication: RELAPSING-REMITTING MULTIPLE SCLEROSIS
     Dosage: 0.5 MG, QD
     Route: 048
     Dates: start: 20110916, end: 20111007
  7. CIPROFLOXACIN [Concomitant]
     Dosage: 250 MG, BID FOR THREE DAYS

REACTIONS (6)
  - NAUSEA [None]
  - OPTIC NEURITIS [None]
  - HYPERTENSION [None]
  - ASTHENIA [None]
  - BRADYCARDIA [None]
  - SOMNOLENCE [None]
